FAERS Safety Report 23586567 (Version 1)
Quarter: 2024Q1

REPORT INFORMATION
  Report Type: Spontaneous
  Country: KR (occurrence: None)
  Receive Date: 20240301
  Receipt Date: 20240301
  Transmission Date: 20240410
  Serious: Yes (Death)
  Sender: FDA-Public Use
  Company Number: 2024A051407

PATIENT
  Age: 23342 Day
  Sex: Female

DRUGS (3)
  1. IMFINZI [Suspect]
     Active Substance: DURVALUMAB
     Dosage: 3 VIAL
     Dates: start: 20231020
  2. IMFINZI [Suspect]
     Active Substance: DURVALUMAB
     Dosage: 6 VIAL
     Dates: start: 20231114
  3. IMFINZI [Suspect]
     Active Substance: DURVALUMAB
     Dosage: 3 VIAL
     Dates: start: 20231221

REACTIONS (2)
  - Multiple organ dysfunction syndrome [Fatal]
  - Metastasis [Fatal]

NARRATIVE: CASE EVENT DATE: 20240115
